FAERS Safety Report 9656026 (Version 2)
Quarter: 2013Q4

REPORT INFORMATION
  Report Type: Spontaneous
  Country: FR (occurrence: FR)
  Receive Date: 20131030
  Receipt Date: 20131204
  Transmission Date: 20140711
  Serious: Yes (Death, Other)
  Sender: FDA-Public Use
  Company Number: FR-JNJFOC-20131013856

PATIENT
  Sex: 0

DRUGS (5)
  1. DOXORUBICIN [Suspect]
     Indication: DIFFUSE LARGE B-CELL LYMPHOMA
     Route: 042
  2. CYCLOPHOSPHAMIDE [Suspect]
     Indication: DIFFUSE LARGE B-CELL LYMPHOMA
     Route: 065
  3. VINCRISTINE [Suspect]
     Indication: DIFFUSE LARGE B-CELL LYMPHOMA
     Route: 065
  4. PREDNISONE [Suspect]
     Indication: DIFFUSE LARGE B-CELL LYMPHOMA
     Route: 065
  5. RITUXIMAB [Suspect]
     Indication: DIFFUSE LARGE B-CELL LYMPHOMA
     Route: 065

REACTIONS (25)
  - Death [Fatal]
  - Administration site reaction [Unknown]
  - Diffuse large B-cell lymphoma [Unknown]
  - Neutropenia [Unknown]
  - Leukopenia [Unknown]
  - Lymphopenia [Unknown]
  - Febrile neutropenia [Unknown]
  - Anaemia [Unknown]
  - Pneumonia [Unknown]
  - Sepsis [Unknown]
  - Urinary tract infection [Unknown]
  - Thrombocytopenia [Unknown]
  - Hypokalaemia [Unknown]
  - Dehydration [Unknown]
  - Deep vein thrombosis [Unknown]
  - Diarrhoea [Unknown]
  - Musculoskeletal disorder [Unknown]
  - Connective tissue disorder [Unknown]
  - Back pain [Unknown]
  - Fatigue [Unknown]
  - Asthenia [Unknown]
  - Troponin T increased [Unknown]
  - Ejection fraction decreased [Unknown]
  - Cardiac failure congestive [Unknown]
  - General physical condition abnormal [Unknown]
